FAERS Safety Report 20788902 (Version 1)
Quarter: 2022Q2

REPORT INFORMATION
  Report Type: Spontaneous
  Country: US (occurrence: None)
  Receive Date: 20220504
  Receipt Date: 20220504
  Transmission Date: 20220721
  Serious: No
  Sender: FDA-Public Use
  Company Number: None

PATIENT
  Sex: Female

DRUGS (1)
  1. BENLYSTA [Suspect]
     Active Substance: BELIMUMAB
     Indication: Drug therapy
     Dosage: FREQUENCY : WEEKLY;?
     Route: 058
     Dates: start: 20220422

REACTIONS (1)
  - Drug ineffective [None]
